FAERS Safety Report 9528795 (Version 3)
Quarter: 2014Q1

REPORT INFORMATION
  Report Type: Report from Study
  Country: DE (occurrence: DE)
  Receive Date: 20130917
  Receipt Date: 20140124
  Transmission Date: 20141002
  Serious: Yes (Hospitalization, Other)
  Sender: FDA-Public Use
  Company Number: DE-ELI_LILLY_AND_COMPANY-DE201203007770

PATIENT
  Age: 65 Year
  Sex: Female
  Weight: 72 kg

DRUGS (10)
  1. PEMETREXED [Suspect]
     Indication: NON-SMALL CELL LUNG CANCER STAGE III
     Dosage: 900 MG,EVERY THREE WEEKS
     Route: 042
     Dates: start: 20120320, end: 20120320
  2. CISPLATIN [Suspect]
     Indication: NON-SMALL CELL LUNG CANCER STAGE III
     Dosage: 140 MG, EVERY THREE WEEKS
     Route: 042
     Dates: start: 20120320, end: 20120320
  3. RADIATION [Suspect]
     Indication: NON-SMALL CELL LUNG CANCER STAGE III
     Dosage: 2 GY EACH DAY FOR 33 DAYS
     Dates: start: 20120320
  4. FOLIC ACID [Concomitant]
     Indication: PROPHYLAXIS
     Dosage: UNK
     Dates: start: 20120309
  5. VITAMIN B12 [Concomitant]
     Indication: PROPHYLAXIS
     Dosage: UNK
     Dates: start: 20120309
  6. DEXAMETHASONE [Concomitant]
     Indication: PROPHYLAXIS
     Dosage: UNK
     Dates: start: 20120319, end: 20120321
  7. CITALOPRAM [Concomitant]
     Indication: DEPRESSION
     Dosage: UNK
     Dates: start: 2008
  8. ANGELIQ [Concomitant]
     Indication: MENOPAUSE
     Dosage: UNK
     Dates: start: 1997
  9. RAMILICH [Concomitant]
     Indication: HYPERTENSION
     Dosage: UNK
     Dates: start: 2008
  10. NOVALGIN [Concomitant]
     Indication: BACK PAIN
     Dosage: UNK
     Dates: start: 2011

REACTIONS (3)
  - Convulsion [Recovered/Resolved]
  - Lumbar vertebral fracture [Recovered/Resolved]
  - Hyponatraemia [Recovered/Resolved]
